APPROVED DRUG PRODUCT: HY-PHEN
Active Ingredient: ACETAMINOPHEN; HYDROCODONE BITARTRATE
Strength: 500MG;5MG
Dosage Form/Route: TABLET;ORAL
Application: A087677 | Product #001
Applicant: BF ASCHER AND CO INC
Approved: May 3, 1982 | RLD: No | RS: No | Type: DISCN